FAERS Safety Report 21254379 (Version 1)
Quarter: 2022Q3

REPORT INFORMATION
  Report Type: Spontaneous
  Country: US (occurrence: None)
  Receive Date: 20220824
  Receipt Date: 20220824
  Transmission Date: 20221026
  Serious: Yes (Hospitalization, Other)
  Sender: FDA-Public Use
  Company Number: None

PATIENT
  Age: 58 Year
  Sex: Male
  Weight: 133.2 kg

DRUGS (2)
  1. VICODIN [Suspect]
     Active Substance: ACETAMINOPHEN\HYDROCODONE BITARTRATE
     Dosage: FREQUENCY : DAILY;?
     Route: 048
  2. FLEXERIL [Concomitant]
     Active Substance: CYCLOBENZAPRINE HYDROCHLORIDE
     Dates: start: 20220314, end: 20220614

REACTIONS (11)
  - Contraindication to medical treatment [None]
  - Inappropriate schedule of product discontinuation [None]
  - Drug ineffective [None]
  - Anxiety [None]
  - Suicidal ideation [None]
  - Liver disorder [None]
  - Cardiac disorder [None]
  - Restrictive pulmonary disease [None]
  - Arthritis [None]
  - Bipolar disorder [None]
  - Victim of abuse [None]

NARRATIVE: CASE EVENT DATE: 20220823
